FAERS Safety Report 14755681 (Version 1)
Quarter: 2018Q2

REPORT INFORMATION
  Report Type: Spontaneous
  Country: US (occurrence: US)
  Receive Date: 20180407
  Receipt Date: 20180407
  Transmission Date: 20180711
  Serious: Yes (Hospitalization)
  Sender: FDA-Public Use
  Company Number: None

PATIENT
  Age: 16 Year
  Sex: Female
  Weight: 47.8 kg

DRUGS (16)
  1. STI571 [Suspect]
     Active Substance: IMATINIB MESYLATE
     Dates: end: 20180329
  2. LEUCOVORIN CALCIUM. [Suspect]
     Active Substance: LEUCOVORIN CALCIUM
     Dates: end: 20180226
  3. MERCAPTOPURINE. [Suspect]
     Active Substance: MERCAPTOPURINE
     Dates: end: 20171023
  4. ETOPOSIDE (VP-16) [Suspect]
     Active Substance: ETOPOSIDE
     Dates: end: 20180326
  5. MESNA. [Suspect]
     Active Substance: MESNA
     Dates: end: 20180226
  6. ONCASPAR [Suspect]
     Active Substance: PEGASPARGASE
     Dates: end: 20180327
  7. DAUNORUBICIN [Suspect]
     Active Substance: DAUNORUBICIN
     Dates: end: 20180227
  8. PREDNISONE. [Suspect]
     Active Substance: PREDNISONE
     Dates: end: 20171011
  9. METHOTREXATE. [Suspect]
     Active Substance: METHOTREXATE
     Dates: end: 20180327
  10. DEXAMETHASONE. [Suspect]
     Active Substance: DEXAMETHASONE
     Dates: end: 20180324
  11. CYCLOPHOSPHAMIDE. [Suspect]
     Active Substance: CYCLOPHOSPHAMIDE
     Dates: end: 20180112
  12. ZINECARD [Suspect]
     Active Substance: DEXRAZOXANE HYDROCHLORIDE
     Dates: end: 20180227
  13. IFOSFAMIDE. [Suspect]
     Active Substance: IFOSFAMIDE
     Dates: end: 20180226
  14. VINCRISTINE SULFATE. [Suspect]
     Active Substance: VINCRISTINE SULFATE
     Dates: end: 20180228
  15. NEULASTA [Suspect]
     Active Substance: PEGFILGRASTIM
     Dates: end: 20180328
  16. CYTARABINE. [Suspect]
     Active Substance: CYTARABINE
     Dates: end: 20180324

REACTIONS (3)
  - Escherichia infection [None]
  - Staphylococcal sepsis [None]
  - Septic shock [None]

NARRATIVE: CASE EVENT DATE: 20180330
